FAERS Safety Report 6141058-1 (Version None)
Quarter: 2009Q2

REPORT INFORMATION
  Report Type: 
  Country: None (occurrence: None)
  Receive Date: 20090402
  Receipt Date: 20090331
  Transmission Date: 20091009
  Serious: Yes (Other)
  Sender: FDA-Public Use
  Company Number: US-BRISTOL-MYERS SQUIBB COMPANY-14567754

PATIENT
  Age: 62 Year
  Sex: Male

DRUGS (5)
  1. ABILIFY [Suspect]
     Indication: DYSTHYMIC DISORDER
     Dosage: 1DF=2-5MG.
  2. ABILIFY [Suspect]
     Indication: DEPRESSION
     Dosage: 1DF=2-5MG.
  3. ABILIFY [Suspect]
     Indication: ATTENTION DEFICIT/HYPERACTIVITY DISORDER
     Dosage: 1DF=2-5MG.
  4. EFFEXOR [Suspect]
  5. CONCERTA [Suspect]

REACTIONS (1)
  - RENAL FAILURE [None]
